FAERS Safety Report 10478966 (Version 1)
Quarter: 2014Q3

REPORT INFORMATION
  Report Type: Spontaneous
  Country: NO (occurrence: NO)
  Receive Date: 20140926
  Receipt Date: 20140926
  Transmission Date: 20150326
  Serious: Yes (Other)
  Sender: FDA-Public Use
  Company Number: NO-WATSON-2014-20481

PATIENT
  Age: 30 Year
  Sex: Female
  Weight: 70 kg

DRUGS (2)
  1. MAXALT [Concomitant]
     Active Substance: RIZATRIPTAN BENZOATE
     Indication: PRODUCT USED FOR UNKNOWN INDICATION
     Dosage: UNK, MAXALT RAPITAB
     Route: 065
  2. TETRACYCLIN ACTAVIS [Suspect]
     Active Substance: TETRACYCLINE
     Indication: ACNE
     Dosage: 100 MG, BID
     Route: 048
     Dates: start: 20140331, end: 20140516

REACTIONS (4)
  - Headache [Recovered/Resolved]
  - Migraine [Recovered/Resolved]
  - Encephalitis [None]
  - Myelitis [None]

NARRATIVE: CASE EVENT DATE: 20140411
